FAERS Safety Report 9398552 (Version 1)
Quarter: 2013Q3

REPORT INFORMATION
  Report Type: Other
  Country: US (occurrence: US)
  Receive Date: 20130712
  Receipt Date: 20130712
  Transmission Date: 20140515
  Serious: Yes (Other)
  Sender: FDA-Public Use
  Company Number: US-BRISTOL-MYERS SQUIBB COMPANY-19100122

PATIENT
  Age: 52 Year
  Sex: Male

DRUGS (2)
  1. DIDANOSINE [Suspect]
     Indication: HIV INFECTION
     Dosage: DISCONTINUED AFTER 6 YRS
  2. ZIDOVUDINE [Suspect]
     Indication: HIV INFECTION
     Dosage: DISCONTINUED AFTER 6 YRS; MODIFIED AS COMBINATION OF 150 MG/D WITH COMBIVIR 300MG/D

REACTIONS (1)
  - Retinal toxicity [Unknown]
